FAERS Safety Report 4477619-5 (Version None)
Quarter: 2004Q4

REPORT INFORMATION
  Report Type: 
  Country: None (occurrence: None)
  Receive Date: 20041013
  Receipt Date: 20040927
  Transmission Date: 20050328
  Serious: Yes (Other)
  Sender: FDA-Public Use
  Company Number: FR_040904876

PATIENT
  Sex: Male

DRUGS (1)
  1. PERGOLIDE MESYLATE [Suspect]
     Indication: PARKINSON'S DISEASE
     Dates: start: 20030201, end: 20040401

REACTIONS (9)
  - BENIGN PROSTATIC HYPERPLASIA [None]
  - CONSTIPATION [None]
  - GANGLION [None]
  - HYDRONEPHROSIS [None]
  - INSOMNIA [None]
  - OEDEMA PERIPHERAL [None]
  - PELVIC MASS [None]
  - RETROPERITONEAL FIBROSIS [None]
  - URETERIC DILATATION [None]
